FAERS Safety Report 5809978-2 (Version None)
Quarter: 2008Q3

REPORT INFORMATION
  Report Type: 
  Country: None (occurrence: None)
  Receive Date: 20080715
  Receipt Date: 20080703
  Transmission Date: 20090109
  Serious: Yes (Hospitalization)
  Sender: FDA-Public Use
  Company Number: CG-MERCK-0807USA01110

PATIENT
  Sex: Male
  Weight: 63 kg

DRUGS (1)
  1. STROMECTOL [Suspect]
     Indication: ONCHOCERCIASIS
     Route: 048
     Dates: start: 20071127, end: 20071127

REACTIONS (6)
  - ARTHRALGIA [None]
  - CHILLS [None]
  - CONJUNCTIVAL HAEMORRHAGE [None]
  - COUGH [None]
  - HEADACHE [None]
  - VERTIGO [None]
